FAERS Safety Report 9322647 (Version 1)
Quarter: 2013Q2

REPORT INFORMATION
  Report Type: Spontaneous
  Country: US (occurrence: US)
  Receive Date: 20130531
  Receipt Date: 20130531
  Transmission Date: 20140414
  Serious: No
  Sender: FDA-Public Use
  Company Number: US-TEVA-409172USA

PATIENT
  Sex: Female

DRUGS (2)
  1. PLAN B ONE-STEP [Suspect]
     Indication: POST COITAL CONTRACEPTION
     Dosage: 1.5 MILLIGRAM DAILY;
     Route: 048
     Dates: start: 20130427, end: 20130427
  2. PLAN B ONE-STEP [Suspect]
     Dosage: 1.5 MILLIGRAM DAILY;
     Route: 048
     Dates: start: 20130526, end: 20130526

REACTIONS (7)
  - Mood swings [Unknown]
  - Irritability [Unknown]
  - Abdominal distension [Unknown]
  - Breast tenderness [Unknown]
  - Menstruation delayed [Not Recovered/Not Resolved]
  - Nausea [Unknown]
  - Pelvic pain [Unknown]
